FAERS Safety Report 8031858-5 (Version None)
Quarter: 2012Q1

REPORT INFORMATION
  Report Type: 
  Country: None (occurrence: None)
  Receive Date: 20120109
  Receipt Date: 20111229
  Transmission Date: 20120608
  Serious: Yes (Other)
  Sender: FDA-Public Use
  Company Number: US-ELI_LILLY_AND_COMPANY-US201201000308

PATIENT
  Sex: Female

DRUGS (2)
  1. ALPRAZOLAM [Concomitant]
     Dosage: 0.5 MG, PRN
  2. CYMBALTA [Suspect]
     Indication: OSTEOARTHRITIS
     Dosage: 30 MG, QD
     Dates: start: 20111219, end: 20111224

REACTIONS (7)
  - DIZZINESS [None]
  - ASTHENIA [None]
  - BODY TEMPERATURE DECREASED [None]
  - PAIN [None]
  - RESPIRATION ABNORMAL [None]
  - FALL [None]
  - MOVEMENT DISORDER [None]
